FAERS Safety Report 25239611 (Version 1)
Quarter: 2025Q2

REPORT INFORMATION
  Report Type: Spontaneous
  Country: US (occurrence: None)
  Receive Date: 20250424
  Receipt Date: 20250424
  Transmission Date: 20250716
  Serious: Yes (Hospitalization)
  Sender: FDA-CTU
  Company Number: None

PATIENT
  Age: 54 Year
  Sex: Female
  Weight: 114.3 kg

DRUGS (2)
  1. OZEMPIC [Suspect]
     Active Substance: SEMAGLUTIDE
     Indication: Type 2 diabetes mellitus
     Dosage: FREQUENCY : WEEKLY;?
     Route: 058
  2. Ozempic 0.25mg [Concomitant]

REACTIONS (5)
  - Abdominal discomfort [None]
  - Diarrhoea [None]
  - Anal incontinence [None]
  - Dehydration [None]
  - Blood potassium decreased [None]

NARRATIVE: CASE EVENT DATE: 20250121
